FAERS Safety Report 8295336-0 (Version None)
Quarter: 2012Q2

REPORT INFORMATION
  Report Type: 
  Country: None (occurrence: None)
  Receive Date: 20120418
  Receipt Date: 20120316
  Transmission Date: 20120825
  Serious: Yes (Hospitalization)
  Sender: FDA-Public Use
  Company Number: US-BAXTER-2012BAX000058

PATIENT
  Sex: Female
  Weight: 74.91 kg

DRUGS (4)
  1. VELCADE [Suspect]
     Indication: MULTIPLE MYELOMA
     Route: 042
     Dates: start: 20111004
  2. DECADRON [Suspect]
     Route: 048
     Dates: start: 20111005
  3. CYTOXAN [Suspect]
     Indication: MULTIPLE MYELOMA
     Route: 042
     Dates: start: 20111004
  4. DECADRON [Suspect]
     Indication: MULTIPLE MYELOMA
     Route: 042
     Dates: start: 20111004

REACTIONS (1)
  - DIVERTICULAR PERFORATION [None]
